FAERS Safety Report 25677698 (Version 1)
Quarter: 2025Q3

REPORT INFORMATION
  Report Type: Spontaneous
  Country: US (occurrence: US)
  Receive Date: 20250813
  Receipt Date: 20250813
  Transmission Date: 20251020
  Serious: Yes (Other)
  Sender: AMGEN
  Company Number: US-AMGEN-USASP2025157720

PATIENT
  Sex: Male

DRUGS (2)
  1. KRYSTEXXA [Suspect]
     Active Substance: PEGLOTICASE
     Indication: Gout
     Route: 040
  2. METHOTREXATE [Suspect]
     Active Substance: METHOTREXATE
     Indication: Gout
     Dosage: UNK UNK, QWK
     Route: 065

REACTIONS (1)
  - Blood uric acid decreased [Recovering/Resolving]

NARRATIVE: CASE EVENT DATE: 20250101
